FAERS Safety Report 8516979-2 (Version None)
Quarter: 2012Q3

REPORT INFORMATION
  Report Type: 
  Country: None (occurrence: None)
  Receive Date: 20120706
  Receipt Date: 20120625
  Transmission Date: 20120928
  Serious: Yes (Hospitalization)
  Sender: FDA-Public Use
  Company Number: 2012MA007834

PATIENT
  Age: 32 Year
  Sex: Male

DRUGS (10)
  1. FLUANXOL [Concomitant]
  2. VARENICLINE TARTRATE [Concomitant]
  3. THIAMINE [Concomitant]
  4. RISPERDAL [Concomitant]
  5. DIAZEPAM [Suspect]
     Indication: PRODUCT USED FOR UNKNOWN INDICATION
     Dosage: UNK
     Dates: start: 19900101, end: 20100401
  6. CITALOPRAM HYDROBROMIDE [Concomitant]
  7. TRILAFON [Suspect]
     Indication: PRODUCT USED FOR UNKNOWN INDICATION
     Dosage: UNK
     Dates: start: 19900101, end: 20090101
  8. NOZINAN [Concomitant]
  9. OXAZEPAM [Suspect]
     Indication: PRODUCT USED FOR UNKNOWN INDICATION
     Dosage: UNK
     Dates: start: 19900101, end: 20100401
  10. TOLVON [Concomitant]

REACTIONS (18)
  - SCHIZOAFFECTIVE DISORDER DEPRESSIVE TYPE [None]
  - UPPER RESPIRATORY TRACT INFECTION [None]
  - ASTHENIA [None]
  - ABNORMAL SENSATION IN EYE [None]
  - FATIGUE [None]
  - BACK PAIN [None]
  - DYSPEPSIA [None]
  - VISUAL ACUITY REDUCED [None]
  - RESTLESSNESS [None]
  - MUSCLE TWITCHING [None]
  - AMNESIA [None]
  - BLEPHAROSPASM [None]
  - PNEUMONIA [None]
  - ANXIETY [None]
  - DEPRESSION [None]
  - AGITATION [None]
  - NOCTURIA [None]
  - CHRONIC OBSTRUCTIVE PULMONARY DISEASE [None]
